FAERS Safety Report 5229001-0 (Version None)
Quarter: 2007Q1

REPORT INFORMATION
  Report Type: 
  Country: None (occurrence: None)
  Receive Date: 20070205
  Receipt Date: 20070123
  Transmission Date: 20070707
  Serious: Yes (Other)
  Sender: FDA-Public Use
  Company Number: CH-ELI_LILLY_AND_COMPANY-CH200701002177

PATIENT
  Age: 59 Year
  Sex: Female

DRUGS (9)
  1. CYMBALTA [Suspect]
     Dosage: 60 MG, DAILY (1/D)
     Route: 048
     Dates: start: 20061122
  2. ZYPREXA [Concomitant]
     Dosage: 5 MG, DAILY (1/D)
     Route: 048
  3. LAMICTAL [Concomitant]
     Indication: DEPRESSION
     Dosage: 25 MG, DAILY (1/D)
     Route: 048
  4. REMERON [Concomitant]
     Dosage: 45 MG, DAILY (1/D)
     Route: 048
     Dates: end: 20071129
  5. TILUR [Concomitant]
     Dosage: 90 MG, DAILY (1/D)
     Route: 048
  6. MAGNESIUM DIASPORAL [Concomitant]
     Route: 048
  7. VITAMIN D3 [Concomitant]
     Indication: OSTEOPOROSIS
     Route: 048
  8. CALCIMAGON [Concomitant]
     Indication: OSTEOPOROSIS
     Route: 048
  9. FOSAMAX [Concomitant]
     Indication: OSTEOPOROSIS
     Route: 048

REACTIONS (1)
  - NODAL ARRHYTHMIA [None]
